FAERS Safety Report 17660643 (Version 2)
Quarter: 2020Q2

REPORT INFORMATION
  Report Type: Spontaneous
  Country: AU (occurrence: AU)
  Receive Date: 20200413
  Receipt Date: 20200420
  Transmission Date: 20200713
  Serious: Yes (Other)
  Sender: FDA-Public Use
  Company Number: AU-ROCHE-2579198

PATIENT
  Sex: Male

DRUGS (1)
  1. VALIUM [Suspect]
     Active Substance: DIAZEPAM
     Indication: PRODUCT USED FOR UNKNOWN INDICATION
     Route: 065

REACTIONS (2)
  - Suicidal ideation [Unknown]
  - Malignant neoplasm progression [Unknown]
